FAERS Safety Report 8103707-8 (Version None)
Quarter: 2012Q1

REPORT INFORMATION
  Report Type: 
  Country: None (occurrence: None)
  Receive Date: 20120201
  Receipt Date: 20120126
  Transmission Date: 20120608
  Serious: Yes (Hospitalization, Other)
  Sender: FDA-Public Use
  Company Number: US-PFIZER INC-2010006414

PATIENT
  Sex: Male

DRUGS (1)
  1. CHANTIX [Suspect]
     Indication: SMOKING CESSATION THERAPY
     Dosage: 1 MG, UNK
     Dates: start: 20080401, end: 20080601

REACTIONS (7)
  - PHYSICAL ASSAULT [None]
  - DEPRESSION [None]
  - INTENTIONAL OVERDOSE [None]
  - SUICIDE ATTEMPT [None]
  - AGGRESSION [None]
  - ATTENTION DEFICIT/HYPERACTIVITY DISORDER [None]
  - BIPOLAR DISORDER [None]
